FAERS Safety Report 6730102-6 (Version None)
Quarter: 2010Q2

REPORT INFORMATION
  Report Type: 
  Country: None (occurrence: None)
  Receive Date: 20100518
  Receipt Date: 20100512
  Transmission Date: 20101027
  Serious: Yes (Other)
  Sender: FDA-Public Use
  Company Number: CA-PFIZER INC-2010049857

PATIENT
  Age: 76 Year
  Sex: Female

DRUGS (18)
  1. LIPITOR [Suspect]
     Indication: HYPERLIPIDAEMIA
     Dosage: 80 MG, UNK
     Route: 048
     Dates: start: 20090827, end: 20091021
  2. LIPITOR [Suspect]
     Dosage: 10 MG, UNK
     Route: 048
     Dates: start: 20091011, end: 20091012
  3. DILANTIN [Suspect]
     Indication: CONVULSION
     Dosage: 800 MG, UNK
     Route: 042
     Dates: start: 20090922, end: 20090922
  4. DILANTIN [Suspect]
     Dosage: 200 MG, UNK
     Route: 048
     Dates: start: 20090923, end: 20091013
  5. DILANTIN [Suspect]
     Dosage: 200 MG, UNK
     Route: 042
     Dates: start: 20090928, end: 20090928
  6. DILANTIN [Suspect]
     Dosage: 300 MG, UNK
     Route: 048
     Dates: start: 20091010, end: 20091012
  7. DILANTIN [Suspect]
     Dosage: 100 MG, UNK
     Route: 048
     Dates: start: 20091014, end: 20091014
  8. FRAGMIN [Suspect]
     Indication: THROMBOSIS PROPHYLAXIS
     Dosage: 5000 IU, UNK
     Route: 058
     Dates: start: 20091002, end: 20091002
  9. BLINDED THERAPY [Suspect]
     Indication: THROMBOSIS PROPHYLAXIS
     Dosage: UNK
     Dates: start: 20090924, end: 20091002
  10. AMLODIPINE BESILATE [Concomitant]
     Indication: HYPERTENSION
     Dosage: 10 MG, UNK
     Route: 042
     Dates: start: 20090827, end: 20091021
  11. BISOPROLOL [Concomitant]
     Indication: HYPERTENSION
     Dosage: 52 MG, UNK
     Route: 048
     Dates: start: 20090827
  12. PLAVIX [Concomitant]
     Indication: CORONARY ARTERY DISEASE
     Dosage: 75 MG, UNK
     Route: 048
     Dates: start: 20090827
  13. IMIPRAMINE [Concomitant]
     Indication: HYPERTENSION
     Dosage: 75 MG, UNK
     Route: 048
     Dates: start: 20090827
  14. ALTACE [Concomitant]
     Indication: HYPERTENSION
     Dosage: 2.5 MG, UNK
     Route: 048
     Dates: start: 20090827, end: 20091021
  15. COUMADIN [Concomitant]
     Indication: THROMBOSIS PROPHYLAXIS
     Dosage: 5 MG, UNK
     Route: 048
     Dates: start: 20091003, end: 20091009
  16. RAMIPRIL [Concomitant]
     Indication: HYPERTENSION
     Dosage: 2.5 MG, UNK
     Route: 048
     Dates: start: 20090922, end: 20090924
  17. HEPARIN [Concomitant]
     Indication: THROMBOSIS PROPHYLAXIS
     Dosage: 5000 IU, UNK
     Route: 058
     Dates: start: 20091010
  18. CIPROFLOXACIN [Concomitant]
     Indication: URINARY TRACT INFECTION
     Dosage: 1000 MG, UNK
     Route: 048
     Dates: start: 20091010, end: 20091014

REACTIONS (1)
  - ALANINE AMINOTRANSFERASE INCREASED [None]
